FAERS Safety Report 7417958-9 (Version None)
Quarter: 2011Q2

REPORT INFORMATION
  Report Type: 
  Country: None (occurrence: None)
  Receive Date: 20110415
  Receipt Date: 20091122
  Transmission Date: 20111010
  Serious: Yes (Hospitalization, Other)
  Sender: FDA-Public Use
  Company Number: US-BAYER-200940293NA

PATIENT
  Age: 58 Year
  Sex: Female
  Weight: 58.957 kg

DRUGS (10)
  1. TRASYLOL [Suspect]
     Indication: CARDIAC OPERATION
  2. ELAVIL [Concomitant]
     Dosage: 25 MG, QD
     Route: 048
  3. ASPIRIN [Concomitant]
     Dosage: 81 MG, QD
  4. MOTRIN [Concomitant]
     Dosage: 800 MG, TID
     Route: 048
  5. PRILOSEC [Concomitant]
     Dosage: 20 UNK, UNK
     Route: 048
  6. TYLENOL W/ CODEINE NO. 3 [Concomitant]
  7. LOPRESSOR [Concomitant]
     Dosage: 100 MG, BID
  8. TRASYLOL [Suspect]
     Indication: MITRAL VALVE REPAIR
     Dosage: UNK
     Route: 042
     Dates: start: 20060525
  9. PREDNISONE [Concomitant]
     Dosage: 5 MG, QD
     Route: 048
  10. PROTAMINE SULFATE [Concomitant]
     Dosage: UNK
     Dates: start: 20060525

REACTIONS (12)
  - RENAL IMPAIRMENT [None]
  - STRESS [None]
  - RENAL FAILURE [None]
  - RENAL INJURY [None]
  - EMOTIONAL DISTRESS [None]
  - UNEVALUABLE EVENT [None]
  - FEAR [None]
  - PAIN [None]
  - MENTAL DISORDER [None]
  - INJURY [None]
  - ANHEDONIA [None]
  - ANXIETY [None]
